FAERS Safety Report 23626803 (Version 1)
Quarter: 2024Q1

REPORT INFORMATION
  Report Type: Spontaneous
  Country: CH (occurrence: CH)
  Receive Date: 20240313
  Receipt Date: 20240313
  Transmission Date: 20240409
  Serious: Yes (Hospitalization, Other)
  Sender: FDA-Public Use
  Company Number: None

PATIENT
  Sex: Female
  Weight: 3.97 kg

DRUGS (8)
  1. LORAZEPAM [Suspect]
     Active Substance: LORAZEPAM
     Dosage: AS NEEDED
     Route: 064
  2. LITHIUM SULFATE [Suspect]
     Active Substance: LITHIUM SULFATE
     Dosage: 24 MMOL, 1X/DAY (IN THE MORNING)
     Route: 064
     Dates: start: 202309, end: 20231120
  3. LITHIUM SULFATE [Suspect]
     Active Substance: LITHIUM SULFATE
     Dosage: 18 MMOL, 1X/DAY (IN THE EVENING)
     Route: 064
     Dates: start: 202309, end: 20231120
  4. LAMICTAL [Suspect]
     Active Substance: LAMOTRIGINE
     Dosage: 100 MG, 2X/DAY (EVERY 12H)
     Route: 064
     Dates: start: 20230821, end: 202309
  5. QUETIAPINE [Suspect]
     Active Substance: QUETIAPINE
     Dosage: 200 MG, 1X/DAY (IN THE MORNING)
     Route: 064
     Dates: start: 2023
  6. QUETIAPINE [Suspect]
     Active Substance: QUETIAPINE
     Dosage: 400 MG, 1X/DAY (IN THE EVENING)
     Route: 064
     Dates: start: 2023
  7. HALDOL [Suspect]
     Active Substance: HALOPERIDOL
     Dosage: 2 MG, 1X/DAY (IN THE MORNING)
     Route: 064
  8. HALDOL [Suspect]
     Active Substance: HALOPERIDOL
     Dosage: 3 MG, 1X/DAY (IN THE EVENING)
     Route: 064

REACTIONS (5)
  - Maternal exposure during pregnancy [Recovered/Resolved]
  - Premature baby [Recovered/Resolved]
  - Polyhydramnios [Recovered/Resolved]
  - Foetal macrosomia [Recovered/Resolved]
  - Foetal hypokinesia [Recovered/Resolved]

NARRATIVE: CASE EVENT DATE: 20230101
